FAERS Safety Report 14976828 (Version 8)
Quarter: 2019Q1

REPORT INFORMATION
  Report Type: Spontaneous
  Country: DE (occurrence: DE)
  Receive Date: 20180605
  Receipt Date: 20190215
  Transmission Date: 20190417
  Serious: Yes (Death, Life-Threatening, Hospitalization, Other)
  Sender: FDA-Public Use
  Company Number: DE-GLAXOSMITHKLINE-DE2018097946

PATIENT
  Age: 64 Year
  Sex: Male
  Weight: 80 kg

DRUGS (10)
  1. METAMIZOLE [Suspect]
     Active Substance: METAMIZOLE
     Indication: PAIN
     Dosage: 1 G, UNK
     Route: 065
  2. PANTOPRAZOLE [Concomitant]
     Active Substance: PANTOPRAZOLE
     Indication: GASTRITIS PROPHYLAXIS
     Dosage: 1-0-0, DAILY DOSE: 40 MG MILLIGRAM(S) EVERY DAY
     Route: 048
     Dates: start: 20160411, end: 20160530
  3. METAMIZOLE [Suspect]
     Active Substance: METAMIZOLE
     Indication: HIP ARTHROPLASTY
     Dosage: 4 GRAM DAILY; 1-1-1-1
     Route: 065
     Dates: start: 20160409, end: 20160428
  4. HYDROCHLOROTHIAZIDE + RAMIPRIL [Suspect]
     Active Substance: HYDROCHLOROTHIAZIDE\RAMIPRIL
     Dosage: 1-0-0.5
     Route: 065
     Dates: start: 20160428
  5. HYDROCHLOROTHIAZIDE + RAMIPRIL [Suspect]
     Active Substance: HYDROCHLOROTHIAZIDE\RAMIPRIL
     Indication: HYPERTENSION
     Dosage: 1-0-0.5
     Route: 065
  6. BISOPROLOL [Concomitant]
     Active Substance: BISOPROLOL
     Indication: HYPERTENSION
     Dosage: 2.5 MILLIGRAM DAILY; 1-0-0
     Route: 065
     Dates: end: 20160428
  7. NOREPINEPHRINE. [Suspect]
     Active Substance: NOREPINEPHRINE
     Indication: TACHYCARDIA
     Dosage: 0.2 ?G/KG BW/MIN
     Route: 016
  8. DICLOFENAC [Suspect]
     Active Substance: DICLOFENAC
     Indication: PAIN
     Dosage: 25 MILLIGRAM DAILY; 1-0-1. RECOMMENDED FOR TWO WEEKS POSTOPERATIVELY
     Route: 048
     Dates: start: 20160411, end: 20160428
  9. CLEXANE [Concomitant]
     Active Substance: ENOXAPARIN SODIUM
     Indication: PRODUCT USED FOR UNKNOWN INDICATION
     Dosage: DAILY DOSE: 40 MG MILLIGRAM(S) EVERY DAY
     Route: 058
     Dates: start: 20160411, end: 20160428
  10. DICLOFENAC [Suspect]
     Active Substance: DICLOFENAC
     Indication: PROPHYLAXIS
     Dosage: 1-0-1
     Route: 065

REACTIONS (11)
  - Agranulocytosis [Fatal]
  - Pancytopenia [Fatal]
  - Bacterial infection [Fatal]
  - Leptotrichia infection [Fatal]
  - Respiratory failure [Fatal]
  - Hepatic function abnormal [Fatal]
  - Renal impairment [Fatal]
  - Multiple organ dysfunction syndrome [Fatal]
  - Septic shock [Fatal]
  - Platelet function test abnormal [Fatal]
  - Leukopenia [Unknown]

NARRATIVE: CASE EVENT DATE: 20160429
